FAERS Safety Report 8698065 (Version 3)
Quarter: 2012Q4

REPORT INFORMATION
  Report Type: 
  Country: CA (occurrence: CA)
  Receive Date: 20120802
  Receipt Date: 20120831
  Transmission Date: 20130627
  Serious: Yes (Other)
  Sender: FDA-Public Use
  Company Number: CA-BRISTOL-MYERS SQUIBB COMPANY-16516585

PATIENT
  Age: 61 Year
  Sex: Female

DRUGS (10)
  1. ORENCIA [Suspect]
     Indication: RHEUMATOID ARTHRITIS
     Dosage: Inf:6, last inf: 19-Jul-12
Lot: 2C80093, Exp: Se2014
     Route: 042
     Dates: start: 20120326
  2. PREDNISONE [Concomitant]
  3. METHOTREXATE [Concomitant]
  4. TEMAZEPAM [Concomitant]
  5. OXYCODONE [Concomitant]
  6. SALMON OIL [Concomitant]
     Dosage: Wils salmon oil
  7. FLAXSEED OIL [Concomitant]
  8. VITAMIN D3 [Concomitant]
  9. ZINC [Concomitant]
  10. MILK THISTLE [Concomitant]

REACTIONS (5)
  - Cardiomegaly [Unknown]
  - Mass [Unknown]
  - Nausea [Not Recovered/Not Resolved]
  - Vomiting [Not Recovered/Not Resolved]
  - Dyspepsia [Unknown]
